FAERS Safety Report 8980593 (Version 2)
Quarter: 2014Q1

REPORT INFORMATION
  Report Type: Report from Study
  Country: CA (occurrence: CA)
  Receive Date: 20121221
  Receipt Date: 20140211
  Transmission Date: 20141002
  Serious: Yes (Other)
  Sender: FDA-Public Use
  Company Number: CA-JNJFOC-20121206460

PATIENT
  Age: 64 Year
  Sex: Male

DRUGS (2)
  1. SIMPONI [Suspect]
     Indication: PSORIATIC ARTHROPATHY
     Dosage: 9 DOSES
     Route: 058
     Dates: start: 20120222, end: 20121124
  2. PREDNISONE [Concomitant]
     Indication: PSORIATIC ARTHROPATHY
     Route: 048

REACTIONS (2)
  - Pancreatic carcinoma [Recovered/Resolved]
  - Hepatic lesion [Unknown]
